FAERS Safety Report 7961929-0 (Version None)
Quarter: 2011Q4

REPORT INFORMATION
  Report Type: 
  Country: None (occurrence: None)
  Receive Date: 20111207
  Receipt Date: 20111130
  Transmission Date: 20120403
  Serious: Yes (Hospitalization, Other)
  Sender: FDA-Public Use
  Company Number: US-ELI_LILLY_AND_COMPANY-US201110000780

PATIENT
  Sex: Male
  Weight: 57.596 kg

DRUGS (13)
  1. CORTICOSTEROIDS [Concomitant]
     Dosage: 4 MG, BID
     Route: 048
  2. FUROSEMIDE [Concomitant]
     Dosage: UNK, UNKNOWN
  3. PANITUMUMAB [Concomitant]
  4. FOLIC ACID [Concomitant]
     Dosage: 1 MG, QD
     Route: 048
     Dates: start: 20100903
  5. COMBIVENT [Concomitant]
     Dosage: UNK, UNKNOWN
  6. ALIMTA [Suspect]
     Indication: NON-SMALL CELL LUNG CANCER
     Dosage: 825 MG, EVERY 21 DAYS
     Route: 042
     Dates: start: 20100910
  7. GEMZAR [Concomitant]
  8. CARVEDILOL [Concomitant]
     Dosage: UNK, UNKNOWN
  9. PERCOCET [Concomitant]
     Dosage: UNK, UNKNOWN
  10. MOXIFLOXACIN [Concomitant]
  11. VITAMIN B-12 [Concomitant]
     Dosage: 1000 UG, UNK
     Route: 030
     Dates: start: 20100903, end: 20110509
  12. SIMVASTATIN [Concomitant]
     Dosage: UNK, UNKNOWN
  13. COUMADIN [Concomitant]
     Dosage: UNK, UNKNOWN

REACTIONS (2)
  - MYOCARDIAL INFARCTION [None]
  - NEOPLASM PROGRESSION [None]
